FAERS Safety Report 8269510-3 (Version None)
Quarter: 2012Q2

REPORT INFORMATION
  Report Type: 
  Country: None (occurrence: None)
  Receive Date: 20120409
  Receipt Date: 20120329
  Transmission Date: 20120825
  Serious: Yes (Other)
  Sender: FDA-Public Use
  Company Number: US-BAXTER-2012BH004536

PATIENT
  Sex: Female
  Weight: 59.6 kg

DRUGS (7)
  1. VALIUM [Concomitant]
     Indication: ANXIETY
     Route: 048
  2. GEODON [Concomitant]
     Indication: ANXIETY
     Route: 048
  3. BENADRYL [Concomitant]
     Indication: PREMEDICATION
     Route: 042
  4. TYLENOL (CAPLET) [Concomitant]
     Indication: PREMEDICATION
     Route: 048
     Dates: start: 20120131, end: 20120131
  5. GAMMAGARD LIQUID [Suspect]
     Route: 042
     Dates: start: 20120215, end: 20120215
  6. WELCHOL [Concomitant]
     Indication: EXPOSURE TO TOXIC AGENT
     Route: 048
  7. GAMMAGARD LIQUID [Suspect]
     Route: 042
     Dates: start: 20120130, end: 20120130

REACTIONS (6)
  - MONONUCLEOSIS SYNDROME [None]
  - DEHYDRATION [None]
  - NAUSEA [None]
  - HEADACHE [None]
  - PYREXIA [None]
  - MALAISE [None]
